FAERS Safety Report 5407446-3 (Version None)
Quarter: 2007Q3

REPORT INFORMATION
  Report Type: 
  Country: None (occurrence: None)
  Receive Date: 20070713
  Receipt Date: 20070116
  Transmission Date: 20080115
  Serious: No
  Sender: FDA-Public Use
  Company Number: US-JNJFOC-2060101612

PATIENT
  Age: 31 Year
  Sex: Female
  Weight: 56.6996 kg

DRUGS (2)
  1. ORTHO EVRA [Suspect]
     Indication: CONTRACEPTION
     Dosage: 1 DOSE (S), 3 IN 4 WEEK, TRANSDERMAL
     Route: 062
     Dates: start: 20050401, end: 20051201
  2. CHINESE HERBS (HERBAL PREPARATION) [Suspect]
     Indication: DRUG USE FOR UNKNOWN INDICATION

REACTIONS (13)
  - ABDOMINAL DISTENSION [None]
  - ARTHRALGIA [None]
  - BLOOD PROLACTIN INCREASED [None]
  - CHLOASMA [None]
  - DENTAL CARIES [None]
  - DISCOMFORT [None]
  - FATIGUE [None]
  - GALACTORRHOEA [None]
  - HYPERTENSION [None]
  - LOSS OF LIBIDO [None]
  - NERVOUSNESS [None]
  - PROLACTINOMA [None]
  - VULVOVAGINAL DRYNESS [None]
